FAERS Safety Report 4608112-4 (Version None)
Quarter: 2005Q2

REPORT INFORMATION
  Report Type: 
  Country: None (occurrence: None)
  Receive Date: 20050303
  Receipt Date: 20041018
  Transmission Date: 20051028
  Serious: No
  Sender: FDA-Public Use
  Company Number: 209723

PATIENT
  Age: 13 Year
  Sex: Male

DRUGS (8)
  1. XOLAIR [Suspect]
     Indication: ASTHMA
     Dosage: 300 MG, Q2W, SUBCUTANEOUS
     Route: 058
     Dates: start: 20040923
  2. ADVAIR (FLUTICASONE PROPIONATE, SALMETEROL XINAFOATE) [Concomitant]
  3. CLARINEX [Concomitant]
  4. RHINOCORT [Concomitant]
  5. SINGULAIR [Concomitant]
  6. XOPENEX [Concomitant]
  7. PREVACID [Concomitant]
  8. PREDNISONE [Concomitant]

REACTIONS (1)
  - VERTIGO [None]
